FAERS Safety Report 25920960 (Version 1)
Quarter: 2025Q4

REPORT INFORMATION
  Report Type: Report from Study
  Country: IN (occurrence: IN)
  Receive Date: 20251014
  Receipt Date: 20251014
  Transmission Date: 20260117
  Serious: Yes (Other)
  Sender: ALEXION PHARMACEUTICALS
  Company Number: IN-AstraZeneca-CH-00969379A

PATIENT
  Sex: Male
  Weight: 75 kg

DRUGS (1)
  1. OSIMERTINIB [Suspect]
     Active Substance: OSIMERTINIB
     Indication: Non-small cell lung cancer metastatic
     Dosage: 80 MILLIGRAM, QD

REACTIONS (5)
  - Typhoid fever [Unknown]
  - Product use issue [Unknown]
  - Hypoaesthesia [Unknown]
  - Visual impairment [Unknown]
  - Paralysis [Unknown]
